FAERS Safety Report 11727506 (Version 1)
Quarter: 2015Q4

REPORT INFORMATION
  Report Type: Spontaneous
  Country: FR (occurrence: FR)
  Receive Date: 20151112
  Receipt Date: 20151112
  Transmission Date: 20160304
  Serious: Yes (Death)
  Sender: FDA-Public Use
  Company Number: FR-GUERBET LLC-1044097

PATIENT
  Age: 45 Year
  Sex: Male

DRUGS (1)
  1. LIPIODOL [Suspect]
     Active Substance: ETHIODIZED OIL
     Indication: EMBOLISM ARTERIAL
     Route: 013
     Dates: start: 20151019, end: 20151019

REACTIONS (2)
  - Death [Fatal]
  - Procedural complication [Fatal]

NARRATIVE: CASE EVENT DATE: 20151020
